FAERS Safety Report 7673851-8 (Version None)
Quarter: 2011Q3

REPORT INFORMATION
  Report Type: 
  Country: None (occurrence: None)
  Receive Date: 20110810
  Receipt Date: 20110801
  Transmission Date: 20111222
  Serious: Yes (Other)
  Sender: FDA-Public Use
  Company Number: US-JNJFOC-20060801830

PATIENT
  Sex: Female
  Weight: 86.18 kg

DRUGS (8)
  1. RISPERDAL [Suspect]
     Indication: ANXIETY
     Route: 048
     Dates: start: 20020901, end: 20040801
  2. SEROQUEL [Suspect]
     Indication: ANXIETY
     Route: 048
     Dates: start: 20030107, end: 20050201
  3. AVALIDE [Concomitant]
  4. SEROQUEL [Suspect]
     Indication: SLEEP DISORDER
     Route: 048
     Dates: start: 20030107, end: 20050201
  5. LIPITOR [Concomitant]
  6. RISPERDAL [Suspect]
     Indication: BIPOLAR DISORDER
     Route: 048
     Dates: start: 20020901, end: 20040801
  7. SEROQUEL [Suspect]
     Indication: BIPOLAR DISORDER
     Route: 048
     Dates: start: 20030107, end: 20050201
  8. RISPERDAL [Suspect]
     Indication: SLEEP DISORDER
     Route: 048
     Dates: start: 20020901, end: 20040801

REACTIONS (8)
  - DIABETES MELLITUS [None]
  - FIBROMYALGIA [None]
  - ABNORMAL WEIGHT GAIN [None]
  - EPSTEIN-BARR VIRUS INFECTION [None]
  - BLOOD CHOLESTEROL INCREASED [None]
  - HYPERTRIGLYCERIDAEMIA [None]
  - LIVER DISORDER [None]
  - TREATMENT NONCOMPLIANCE [None]
